FAERS Safety Report 6856062-5 (Version None)
Quarter: 2010Q3

REPORT INFORMATION
  Report Type: 
  Country: None (occurrence: None)
  Receive Date: 20100715
  Receipt Date: 20100715
  Transmission Date: 20110219
  Serious: Yes (Other)
  Sender: FDA-Public Use
  Company Number: None

PATIENT
  Age: 67 Year
  Sex: Female
  Weight: 127.0072 kg

DRUGS (1)
  1. LEVAQUIN [Suspect]
     Indication: CELLULITIS
     Dates: start: 20100618, end: 20100628

REACTIONS (4)
  - ARTHRALGIA [None]
  - PRODUCT QUALITY ISSUE [None]
  - SWELLING [None]
  - TENDON DISORDER [None]
